FAERS Safety Report 7827163-X (Version None)
Quarter: 2011Q4

REPORT INFORMATION
  Report Type: 
  Country: None (occurrence: None)
  Receive Date: 20111020
  Receipt Date: 20111018
  Transmission Date: 20120403
  Serious: No
  Sender: FDA-Public Use
  Company Number: US-B.I. PHARMACEUTICALS,INC./RIDGEFIELD-2011-BP-17066BP

PATIENT
  Age: 84 Year
  Sex: Female

DRUGS (12)
  1. LASIX [Concomitant]
     Indication: CARDIAC DISORDER
     Route: 048
     Dates: start: 20110428
  2. PRADAXA [Suspect]
     Indication: CEREBROVASCULAR ACCIDENT PROPHYLAXIS
  3. LASIX [Concomitant]
     Dosage: 40 MG
     Route: 048
  4. PRADAXA [Suspect]
     Indication: ATRIAL FIBRILLATION
     Dosage: 150 MG
     Route: 048
     Dates: start: 20110328
  5. LASIX [Concomitant]
     Indication: CARDIAC FAILURE CONGESTIVE
     Route: 048
     Dates: start: 20110428
  6. VITAMIN B-12 [Concomitant]
     Indication: NEUROPATHY PERIPHERAL
     Route: 060
  7. DILTIAZEM HCL [Concomitant]
     Indication: ATRIAL FIBRILLATION
  8. CENTRUM MULTIVIT [Concomitant]
     Indication: SUPPLEMENTATION THERAPY
     Route: 048
  9. DILTIAZEM HCL [Concomitant]
     Indication: CARDIAC DISORDER
     Dosage: 60 MG
     Route: 048
     Dates: start: 20110328
  10. CALTRATE W/ VIT D [Concomitant]
     Indication: SUPPLEMENTATION THERAPY
     Dosage: 600 MG
     Route: 048
  11. PRADAXA [Suspect]
     Indication: MITRAL VALVE PROLAPSE
  12. DIGOXIN [Concomitant]
     Indication: CARDIAC FAILURE CONGESTIVE
     Dosage: 0.125 MG
     Route: 048

REACTIONS (11)
  - EAR PRURITUS [None]
  - DYSPEPSIA [None]
  - EXCESSIVE EYE BLINKING [None]
  - ABDOMINAL DISCOMFORT [None]
  - TONGUE DISORDER [None]
  - OCULAR HYPERAEMIA [None]
  - SWOLLEN TONGUE [None]
  - FLATULENCE [None]
  - PRURITUS [None]
  - DYSPHAGIA [None]
  - TONGUE INJURY [None]
